FAERS Safety Report 10748391 (Version 4)
Quarter: 2015Q2

REPORT INFORMATION
  Report Type: Report from Study
  Country: JP (occurrence: JP)
  Receive Date: 20150129
  Receipt Date: 20150612
  Transmission Date: 20150821
  Serious: Yes (Other)
  Sender: FDA-Public Use
  Company Number: JP-AMGEN-JPNNI2015008148

PATIENT
  Age: 80 Year
  Sex: Male

DRUGS (8)
  1. MAINTATE [Concomitant]
     Active Substance: BISOPROLOL FUMARATE
     Dosage: UNK
     Route: 065
  2. CASODEX [Concomitant]
     Active Substance: BICALUTAMIDE
     Dosage: UNK
     Route: 065
     Dates: start: 20141213
  3. MAGNESIUM OXIDE. [Concomitant]
     Active Substance: MAGNESIUM OXIDE
     Dosage: 1.5 G, QD
     Route: 048
     Dates: start: 20070118
  4. EDIROL [Concomitant]
     Active Substance: ELDECALCITOL
     Dosage: 0.75 MUG, QD
     Route: 048
     Dates: start: 20130927
  5. XARELTO [Concomitant]
     Active Substance: RIVAROXABAN
     Dosage: UNK
     Route: 065
  6. LEUPLIN [Concomitant]
     Active Substance: LEUPROLIDE ACETATE
     Dosage: UNK
     Route: 065
     Dates: start: 20100716
  7. DENOSUMAB [Suspect]
     Active Substance: DENOSUMAB
     Indication: METASTASES TO BONE
     Dosage: 120 MG, UNK
     Route: 058
     Dates: start: 20130927, end: 20150110
  8. XTANDI [Concomitant]
     Active Substance: ENZALUTAMIDE
     Dosage: UNK
     Route: 065
     Dates: start: 20141004, end: 20141007

REACTIONS (1)
  - Osteonecrosis of jaw [Not Recovered/Not Resolved]

NARRATIVE: CASE EVENT DATE: 20150119
